FAERS Safety Report 9450555 (Version 3)
Quarter: 2013Q3

REPORT INFORMATION
  Report Type: Spontaneous
  Country: US (occurrence: US)
  Receive Date: 20130809
  Receipt Date: 20130910
  Transmission Date: 20140515
  Serious: Yes (Hospitalization)
  Sender: FDA-Public Use
  Company Number: US-GLAXOSMITHKLINE-A1034881A

PATIENT
  Age: 70 Year
  Sex: Male

DRUGS (1)
  1. VOTRIENT [Suspect]
     Indication: RENAL CANCER
     Dosage: 800MG PER DAY
     Route: 048

REACTIONS (5)
  - Large intestine perforation [Recovered/Resolved]
  - Intestinal resection [Recovered/Resolved]
  - Headache [Recovered/Resolved]
  - Adverse event [Recovered/Resolved]
  - Back pain [Recovered/Resolved]
